FAERS Safety Report 6889625-1 (Version None)
Quarter: 2010Q3

REPORT INFORMATION
  Report Type: 
  Country: None (occurrence: None)
  Receive Date: 20100730
  Receipt Date: 20080404
  Transmission Date: 20110219
  Serious: No
  Sender: FDA-Public Use
  Company Number: US-PFIZER INC-2008030009

PATIENT
  Sex: Female
  Weight: 118.18 kg

DRUGS (6)
  1. LIPITOR [Suspect]
     Indication: BLOOD CHOLESTEROL ABNORMAL
     Route: 048
     Dates: start: 20080301
  2. DILTIAZEM HYDROCHLORIDE [Concomitant]
  3. VALSARTAN [Concomitant]
  4. SYNTHROID [Concomitant]
  5. METOPROLOL TARTRATE [Concomitant]
  6. EVISTA [Concomitant]

REACTIONS (1)
  - MYALGIA [None]
